FAERS Safety Report 15110056 (Version 1)
Quarter: 2018Q3

REPORT INFORMATION
  Report Type: Spontaneous
  Country: FR (occurrence: FR)
  Receive Date: 20180705
  Receipt Date: 20180705
  Transmission Date: 20181010
  Serious: Yes (Hospitalization)
  Sender: FDA-Public Use
  Company Number: PHHY2018FR036019

PATIENT
  Age: 55 Year
  Sex: Female
  Weight: 58 kg

DRUGS (1)
  1. CARBAMAZEPINE. [Suspect]
     Active Substance: CARBAMAZEPINE
     Indication: PROPHYLAXIS
     Dosage: 1 DF, QD
     Route: 048
     Dates: start: 1995, end: 201710

REACTIONS (5)
  - Hyponatraemia [Recovered/Resolved]
  - Ataxia [Recovered/Resolved]
  - Interstitial lung disease [Recovered/Resolved]
  - Hepatomegaly [Recovered/Resolved]
  - Hypogammaglobulinaemia [Recovered/Resolved]

NARRATIVE: CASE EVENT DATE: 201710
